FAERS Safety Report 5126106-X (Version None)
Quarter: 2006Q4

REPORT INFORMATION
  Report Type: 
  Country: None (occurrence: None)
  Receive Date: 20061012
  Receipt Date: 20060322
  Transmission Date: 20070319
  Serious: Yes (Hospitalization)
  Sender: FDA-Public Use
  Company Number: CN-BRISTOL-MYERS SQUIBB COMPANY-13322433

PATIENT
  Age: 44 Year
  Sex: Male

DRUGS (1)
  1. BARACLUDE [Suspect]
     Indication: CHRONIC HEPATITIS
     Route: 048
     Dates: start: 20060311, end: 20060320

REACTIONS (5)
  - ALANINE AMINOTRANSFERASE INCREASED [None]
  - ANOREXIA [None]
  - BLOOD BILIRUBIN INCREASED [None]
  - INSOMNIA [None]
  - OCULAR ICTERUS [None]
